FAERS Safety Report 14242080 (Version 2)
Quarter: 2017Q4

REPORT INFORMATION
  Report Type: Spontaneous
  Country: JP (occurrence: JP)
  Receive Date: 20171201
  Receipt Date: 20171227
  Transmission Date: 20180321
  Serious: Yes (Hospitalization, Other)
  Sender: FDA-Public Use
  Company Number: JP-TEVA-705858ACC

PATIENT
  Age: 67 Year
  Sex: Female

DRUGS (13)
  1. GAMMA-GLOBULIN [Concomitant]
     Active Substance: IMMUNE GLOBULIN NOS
     Indication: SPLENIC MARGINAL ZONE LYMPHOMA
     Dosage: (HIGH DOSE)
     Route: 065
  2. PREDNISOLONE. [Suspect]
     Active Substance: PREDNISOLONE
     Indication: CYTOPENIA
     Dosage: 30-70 MG, ONCE DAILY
     Route: 048
     Dates: start: 20160115
  3. RITUXIMAB. [Suspect]
     Active Substance: RITUXIMAB
     Indication: BICYTOPENIA
     Route: 042
     Dates: start: 20160209
  4. BENDAMUSTINE HYDROCHLORIDE. [Suspect]
     Active Substance: BENDAMUSTINE HYDROCHLORIDE
     Indication: SPLENIC MARGINAL ZONE LYMPHOMA
     Dosage: 6 CYCLES
     Route: 042
     Dates: start: 20160222
  5. RITUXIMAB. [Suspect]
     Active Substance: RITUXIMAB
     Route: 042
     Dates: start: 20160219
  6. DEXAMETHASONE. [Suspect]
     Active Substance: DEXAMETHASONE
     Indication: BICYTOPENIA
     Dosage: 20-40 MG, (HIGH DOSE)
     Route: 048
     Dates: start: 20160129, end: 20160216
  7. GAMMA-GLOBULIN [Concomitant]
     Active Substance: IMMUNE GLOBULIN NOS
     Indication: BICYTOPENIA
  8. PREDNISOLONE. [Suspect]
     Active Substance: PREDNISOLONE
     Indication: RHEUMATOID ARTHRITIS
  9. RITUXIMAB. [Suspect]
     Active Substance: RITUXIMAB
     Route: 042
     Dates: start: 20160212
  10. ELTROMBOPAG [Concomitant]
     Active Substance: ELTROMBOPAG
     Indication: THROMBOCYTOPENIA
     Dosage: 12.5 MILLIGRAM DAILY;
     Route: 065
  11. BENDAMUSTINE HYDROCHLORIDE. [Suspect]
     Active Substance: BENDAMUSTINE HYDROCHLORIDE
     Dosage: 6 CYCLES
     Route: 042
     Dates: start: 20160420
  12. RITUXIMAB. [Suspect]
     Active Substance: RITUXIMAB
     Indication: SPLENIC MARGINAL ZONE LYMPHOMA
     Route: 042
     Dates: start: 20160205
  13. DEXAMETHASONE. [Suspect]
     Active Substance: DEXAMETHASONE
     Indication: SPLENIC MARGINAL ZONE LYMPHOMA
     Dosage: 20-40 MG, (HIGH DOSE)
     Route: 042

REACTIONS (6)
  - Cytomegalovirus infection [Recovered/Resolved]
  - Pancytopenia [Recovered/Resolved]
  - Pneumonia [Recovered/Resolved]
  - Off label use [Unknown]
  - Prescribed underdose [Unknown]
  - Jaundice [Unknown]

NARRATIVE: CASE EVENT DATE: 20160307
